FAERS Safety Report 7648385-7 (Version None)
Quarter: 2011Q3

REPORT INFORMATION
  Report Type: 
  Country: None (occurrence: None)
  Receive Date: 20110801
  Receipt Date: 20110721
  Transmission Date: 20111222
  Serious: Yes (Hospitalization, Other)
  Sender: FDA-Public Use
  Company Number: US-ASTRAZENECA-2011SE31339

PATIENT
  Age: 58 Year
  Sex: Female

DRUGS (2)
  1. TOPROL-XL [Suspect]
     Route: 048
  2. TOPROL-XL [Suspect]
     Route: 048

REACTIONS (8)
  - CARDIAC OPERATION [None]
  - CARDIAC ABLATION [None]
  - BLOOD PRESSURE SYSTOLIC INCREASED [None]
  - BLOOD GLUCOSE INCREASED [None]
  - DIABETES MELLITUS [None]
  - WEIGHT INCREASED [None]
  - WRONG TECHNIQUE IN DRUG USAGE PROCESS [None]
  - VISUAL ACUITY REDUCED [None]
